FAERS Safety Report 9466689 (Version 1)
Quarter: 2013Q3

REPORT INFORMATION
  Report Type: Spontaneous
  Country: DE (occurrence: DE)
  Receive Date: 20130820
  Receipt Date: 20130820
  Transmission Date: 20140515
  Serious: Yes (Other)
  Sender: FDA-Public Use
  Company Number: DE-TEVA-425359GER

PATIENT
  Sex: Female

DRUGS (3)
  1. DOXEPIN [Suspect]
     Indication: DEPRESSION
     Dosage: 50 MILLIGRAM DAILY;
     Route: 048
  2. OPIPRAMOL [Suspect]
     Indication: DEPRESSION
     Dosage: 200 MG/D (-100) / 12 GW DOSE REDUCTION TO 2X50MG/D
     Route: 048
  3. FOLS?URE [Concomitant]
     Indication: PROPHYLAXIS OF NEURAL TUBE DEFECT
     Dosage: 400 MICROGRAM DAILY;
     Route: 048

REACTIONS (1)
  - Abortion late [Recovered/Resolved]
